FAERS Safety Report 7227300-4 (Version None)
Quarter: 2011Q1

REPORT INFORMATION
  Report Type: 
  Country: None (occurrence: None)
  Receive Date: 20110114
  Receipt Date: 20100823
  Transmission Date: 20110831
  Serious: Yes (Hospitalization)
  Sender: FDA-Public Use
  Company Number: B0618888A

PATIENT
  Sex: Female
  Weight: 65.6 kg

DRUGS (1)
  1. PAZOPANIB [Suspect]
     Indication: SARCOMA
     Dosage: 800MG PER DAY
     Route: 048
     Dates: start: 20090915

REACTIONS (1)
  - TUMOUR PAIN [None]
